FAERS Safety Report 5399150-5 (Version None)
Quarter: 2007Q3

REPORT INFORMATION
  Report Type: 
  Country: None (occurrence: None)
  Receive Date: 20070725
  Receipt Date: 20070725
  Transmission Date: 20080115
  Serious: Yes (Hospitalization)
  Sender: FDA-Public Use
  Company Number: None

PATIENT
  Sex: Male
  Weight: 146.0582 kg

DRUGS (2)
  1. ZIPRASIDONE HCL [Suspect]
     Indication: SCHIZOAFFECTIVE DISORDER
     Dosage: 160MG QHS PO
     Route: 048
     Dates: start: 20070309
  2. ZIPRASIDONE HCL [Suspect]
     Indication: SCHIZOAFFECTIVE DISORDER
     Dosage: 160MG QHS PO
     Route: 048
     Dates: start: 20070503

REACTIONS (4)
  - AKATHISIA [None]
  - ANXIETY [None]
  - DYSPHAGIA [None]
  - TARDIVE DYSKINESIA [None]
